FAERS Safety Report 4316688-X (Version None)
Quarter: 2004Q1

REPORT INFORMATION
  Report Type: 
  Country: None (occurrence: None)
  Receive Date: 20040311
  Receipt Date: 20040302
  Transmission Date: 20041129
  Serious: Yes (Hospitalization)
  Sender: FDA-Public Use
  Company Number: 2004CG00441

PATIENT
  Age: 70 Year
  Sex: Female

DRUGS (8)
  1. MOPRAL [Suspect]
     Indication: DIAPHRAGMATIC HERNIA
     Dosage: 20 MG DAILY PO
     Route: 048
     Dates: end: 20040117
  2. DAFALGAN [Suspect]
     Dosage: 1 G TID PO
     Route: 048
     Dates: end: 20040117
  3. BROMAZEPAM [Suspect]
     Dosage: 0.25 DF TID PO
     Route: 048
     Dates: end: 20040117
  4. LESCOL [Suspect]
     Dosage: 80 MG DAILY PO
     Route: 048
     Dates: end: 20040117
  5. CELEBREX [Suspect]
     Dosage: 200 MG DAILY PO
     Route: 048
     Dates: start: 20040112, end: 20040117
  6. PADERYL TABLETS [Suspect]
     Dosage: 1 DF DAILY PO
     Route: 048
     Dates: end: 20040117
  7. ZOLPIDEM TARTRATE [Suspect]
     Dosage: 1 DF DAILY
     Dates: end: 20040117
  8. DAFALGAN CODEINE [Suspect]
     Dosage: 1 DF DAILY
     Dates: end: 20040117

REACTIONS (17)
  - ABDOMINAL PAIN [None]
  - ASTHENIA [None]
  - C-REACTIVE PROTEIN INCREASED [None]
  - CONSTIPATION [None]
  - DIVERTICULUM INTESTINAL HAEMORRHAGIC [None]
  - GASTROINTESTINAL EROSION [None]
  - GASTROINTESTINAL NECROSIS [None]
  - HAEMOGLOBIN DECREASED [None]
  - HIATUS HERNIA [None]
  - INTESTINAL ISCHAEMIA [None]
  - LEUKOCYTOSIS [None]
  - MESENTERIC OCCLUSION [None]
  - NAUSEA [None]
  - PALLOR [None]
  - PYREXIA [None]
  - VOMITING [None]
  - WRIST FRACTURE [None]
